FAERS Safety Report 16189701 (Version 1)
Quarter: 2019Q2

REPORT INFORMATION
  Report Type: Spontaneous
  Country: US (occurrence: US)
  Receive Date: 20190412
  Receipt Date: 20190412
  Transmission Date: 20190711
  Serious: Yes (Other)
  Sender: FDA-Public Use
  Company Number: US-JNJFOC-20190411709

PATIENT
  Sex: Female

DRUGS (2)
  1. XARELTO [Suspect]
     Active Substance: RIVAROXABAN
     Indication: HIP ARTHROPLASTY
     Route: 048
     Dates: start: 201701, end: 201901
  2. XARELTO [Suspect]
     Active Substance: RIVAROXABAN
     Indication: HAEMORRHAGE
     Route: 048
     Dates: start: 201701, end: 201901

REACTIONS (5)
  - Internal haemorrhage [Unknown]
  - Vaginal haemorrhage [Unknown]
  - Respiratory failure [Unknown]
  - Gastrointestinal haemorrhage [Unknown]
  - Renal haemorrhage [Unknown]

NARRATIVE: CASE EVENT DATE: 201811
